FAERS Safety Report 5315339-5 (Version None)
Quarter: 2007Q2

REPORT INFORMATION
  Report Type: 
  Country: None (occurrence: None)
  Receive Date: 20070502
  Receipt Date: 20070424
  Transmission Date: 20071010
  Serious: Yes (Other)
  Sender: FDA-Public Use
  Company Number: GB-PFIZER INC-2007033801

PATIENT
  Age: 71 Year
  Sex: Female

DRUGS (2)
  1. XALATAN [Suspect]
     Indication: GLAUCOMA
     Dosage: TEXT:1 DROP IN RIGHT EYE AT NIGHT
     Route: 047
  2. HOMEOPATHIC PREPARATION [Concomitant]

REACTIONS (4)
  - EXOPHTHALMOS [None]
  - EYE SWELLING [None]
  - OCULAR HYPERAEMIA [None]
  - SKIN DISCOLOURATION [None]
